FAERS Safety Report 4288525-3 (Version None)
Quarter: 2004Q1

REPORT INFORMATION
  Report Type: 
  Country: None (occurrence: None)
  Receive Date: 20040205
  Receipt Date: 20040119
  Transmission Date: 20041129
  Serious: Yes (Hospitalization)
  Sender: FDA-Public Use
  Company Number: GBS040114299

PATIENT
  Age: 0 Year
  Sex: Male
  Weight: 3 kg

DRUGS (1)
  1. FLUOXETINE [Suspect]

REACTIONS (4)
  - BLOOD BILIRUBIN INCREASED [None]
  - DRUG EXPOSURE DURING PREGNANCY [None]
  - FEEDING PROBLEM IN NEWBORN [None]
  - THROMBOCYTOPENIA [None]
